FAERS Safety Report 8435523-1 (Version None)
Quarter: 2012Q2

REPORT INFORMATION
  Report Type: 
  Country: None (occurrence: None)
  Receive Date: 20120614
  Receipt Date: 20120611
  Transmission Date: 20120825
  Serious: Yes (Death, Hospitalization)
  Sender: FDA-Public Use
  Company Number: DE-BAYER-2012-046643

PATIENT
  Age: 89 Year
  Sex: Female

DRUGS (8)
  1. CIPROFLOXACIN [Suspect]
     Indication: EVIDENCE BASED TREATMENT
     Dosage: 500 MG, BID
     Dates: start: 20120301, end: 20120314
  2. ASPIRIN [Concomitant]
     Dosage: 100 MG, OM
  3. PANTOPRAZOLE [Concomitant]
     Dosage: 20 MG, OM
  4. BISOPROLOL FUMARATE [Concomitant]
     Dosage: 5MG: 2-0-1-0
  5. DOXAZOSIN MESYLATE [Concomitant]
     Dosage: 2MG: 2-0-2-0
  6. MOXONIDIN [Concomitant]
     Dosage: 0.2 MG, OM
  7. MOVIPREP [Concomitant]
     Dosage: MOVICOL :1-1-0-0
  8. VOCADO [Concomitant]
     Dosage: 1 DF, OM

REACTIONS (4)
  - PULMONARY OEDEMA [None]
  - RENAL IMPAIRMENT [None]
  - RENAL FAILURE ACUTE [None]
  - PULMONARY CONGESTION [None]
